FAERS Safety Report 19670004 (Version 3)
Quarter: 2021Q4

REPORT INFORMATION
  Report Type: Spontaneous
  Country: US (occurrence: None)
  Receive Date: 20210806
  Receipt Date: 20211215
  Transmission Date: 20220304
  Serious: Yes (Other)
  Sender: FDA-Public Use
  Company Number: US-ROCHE-2883159

PATIENT
  Age: 57 Year
  Sex: Female

DRUGS (3)
  1. RITUXAN [Suspect]
     Active Substance: RITUXIMAB
     Indication: Rheumatoid arthritis
     Dosage: GIVEN DAY 1 AND 15 DAYS LATER.
     Route: 041
     Dates: start: 2018
  2. BENADRYL [Concomitant]
     Active Substance: DIPHENHYDRAMINE HYDROCHLORIDE
     Dosage: PREP MEDICATION
     Route: 048
  3. METHYLPREDNISOLONE [Concomitant]
     Active Substance: METHYLPREDNISOLONE
     Dosage: PREP MEDICATION
     Route: 048

REACTIONS (5)
  - Salivary hypersecretion [Unknown]
  - Throat clearing [Unknown]
  - Hypertension [Recovered/Resolved]
  - Paraesthesia [Unknown]
  - Spinal fracture [Unknown]

NARRATIVE: CASE EVENT DATE: 20210816
